FAERS Safety Report 18571961 (Version 2)
Quarter: 2020Q4

REPORT INFORMATION
  Report Type: Spontaneous
  Country: PT (occurrence: PT)
  Receive Date: 20201203
  Receipt Date: 20201223
  Transmission Date: 20210114
  Serious: Yes (Other)
  Sender: FDA-Public Use
  Company Number: PT-AMGEN-PRTSP2020195483

PATIENT
  Age: 73 Year
  Sex: Female

DRUGS (4)
  1. ENBREL [Suspect]
     Active Substance: ETANERCEPT
     Indication: SPONDYLITIS
     Dosage: 50 MG, WEEKLY (1 PEN WEEKLY)
     Route: 058
     Dates: start: 20160602, end: 20201026
  2. ENBREL [Suspect]
     Active Substance: ETANERCEPT
     Dosage: 50 MILLIGRAM, QWK
     Route: 058
     Dates: end: 20201026
  3. METHOTREXATE. [Concomitant]
     Active Substance: METHOTREXATE
     Dosage: WEEKLY ADMINISTRATION
     Route: 058
  4. ENBREL [Suspect]
     Active Substance: ETANERCEPT
     Dosage: UNK
     Route: 058
     Dates: start: 20170601, end: 20170603

REACTIONS (2)
  - Rash macular [Recovered/Resolved]
  - Rash macular [Unknown]

NARRATIVE: CASE EVENT DATE: 201706
